FAERS Safety Report 24440561 (Version 2)
Quarter: 2024Q4

REPORT INFORMATION
  Report Type: Spontaneous
  Country: KW (occurrence: KW)
  Receive Date: 20241016
  Receipt Date: 20241018
  Transmission Date: 20250114
  Serious: Yes (Life-Threatening, Hospitalization, Other)
  Sender: ACCORD
  Company Number: KW-Accord-450934

PATIENT
  Age: 30 Year
  Sex: Male

DRUGS (1)
  1. LEVETIRACETAM [Suspect]
     Active Substance: LEVETIRACETAM
     Indication: Seizure
     Dosage: 500 MILLIGRAMS TWICE A DAY

REACTIONS (3)
  - Rhabdomyolysis [Recovered/Resolved]
  - Pulmonary oedema [Unknown]
  - Acute kidney injury [Recovered/Resolved]
